FAERS Safety Report 16982345 (Version 1)
Quarter: 2019Q4

REPORT INFORMATION
  Report Type: Spontaneous
  Country: US (occurrence: US)
  Receive Date: 20191101
  Receipt Date: 20191101
  Transmission Date: 20200122
  Serious: No
  Sender: FDA-Public Use
  Company Number: US-ELI_LILLY_AND_COMPANY-US201910013427

PATIENT
  Sex: Female

DRUGS (2)
  1. BASAGLAR [Suspect]
     Active Substance: INSULIN GLARGINE
     Indication: TYPE 2 DIABETES MELLITUS
     Dosage: 20 U, EACH EVENING
     Route: 065
  2. TRULICITY [Concomitant]
     Active Substance: DULAGLUTIDE
     Indication: TYPE 2 DIABETES MELLITUS
     Dosage: 1.5 MG, UNKNOWN
     Route: 058

REACTIONS (7)
  - Blood glucose increased [Not Recovered/Not Resolved]
  - Lethargy [Recovered/Resolved]
  - Malaise [Not Recovered/Not Resolved]
  - Glycosylated haemoglobin increased [Not Recovered/Not Resolved]
  - Fatigue [Not Recovered/Not Resolved]
  - Weight decreased [Not Recovered/Not Resolved]
  - Irritability [Not Recovered/Not Resolved]
